FAERS Safety Report 21201104 (Version 2)
Quarter: 2022Q3

REPORT INFORMATION
  Report Type: Spontaneous
  Country: US (occurrence: US)
  Receive Date: 20220811
  Receipt Date: 20220906
  Transmission Date: 20221026
  Serious: No
  Sender: FDA-Public Use
  Company Number: US-PFIZER INC-202201049508

PATIENT
  Age: 60 Year
  Sex: Male

DRUGS (1)
  1. PAXLOVID [Suspect]
     Active Substance: NIRMATRELVIR\RITONAVIR
     Indication: COVID-19 treatment
     Dosage: UNK
     Dates: start: 20220719, end: 20220724

REACTIONS (5)
  - Fatigue [Recovered/Resolved with Sequelae]
  - Headache [Recovered/Resolved with Sequelae]
  - Pain [Recovered/Resolved with Sequelae]
  - Cough [Recovered/Resolved with Sequelae]
  - Oropharyngeal pain [Recovered/Resolved with Sequelae]

NARRATIVE: CASE EVENT DATE: 20220726
